FAERS Safety Report 5325674-2 (Version None)
Quarter: 2007Q2

REPORT INFORMATION
  Report Type: 
  Country: None (occurrence: None)
  Receive Date: 20070515
  Receipt Date: 20070508
  Transmission Date: 20071010
  Serious: Yes (Hospitalization)
  Sender: FDA-Public Use
  Company Number: CH-PFIZER INC-2007036498

PATIENT
  Sex: Female

DRUGS (1)
  1. XANAX [Suspect]
     Route: 048

REACTIONS (3)
  - DRUG TOXICITY [None]
  - FALL [None]
  - VERTIGO [None]
